FAERS Safety Report 7402478-8 (Version None)
Quarter: 2011Q2

REPORT INFORMATION
  Report Type: 
  Country: None (occurrence: None)
  Receive Date: 20110408
  Receipt Date: 20110324
  Transmission Date: 20111010
  Serious: Yes (Hospitalization, Disabling, Other)
  Sender: FDA-Public Use
  Company Number: PHEH2004US02126

PATIENT
  Sex: Female

DRUGS (19)
  1. NORVASC [Concomitant]
  2. PROTONIX [Concomitant]
     Dosage: 40 MG, QD
  3. THALIDOMIDE [Concomitant]
     Dosage: 50 MG, QD
     Dates: start: 19990601, end: 20000101
  4. THALIDOMIDE [Concomitant]
     Dosage: 100 MG, QD
     Dates: start: 20000101
  5. THALIDOMIDE [Concomitant]
     Dosage: 100 MG, UNK
  6. VITAMIN B COMPLEX CAP [Concomitant]
     Dosage: UNK
  7. AREDIA [Suspect]
     Indication: MULTIPLE MYELOMA
     Dosage: 90 MG, QMO
     Route: 042
     Dates: start: 19970601, end: 20041001
  8. CALCIUM CITRATE [Concomitant]
     Dosage: 1200 MG, UNK
  9. FUROSEMIDE [Concomitant]
  10. TOPROL-XL [Concomitant]
     Dosage: 100 MG, QD
  11. COZAAR [Concomitant]
  12. PREDNISONE [Concomitant]
     Dosage: 4 DAYS/QMOS
     Dates: start: 19980801, end: 19990501
  13. OMEPRAZOLE [Concomitant]
     Dosage: 20 MG, UNK
  14. PREVACID [Concomitant]
     Dosage: UNK
  15. ASPIRIN [Concomitant]
     Dosage: 81 MG, UNK
  16. CATAPRES [Concomitant]
  17. SYNTHROID [Concomitant]
  18. AREDIA [Suspect]
     Dosage: UNK
  19. MELPHALAN [Concomitant]
     Dosage: 4 DAYS/QMOS
     Dates: start: 19980801, end: 19990501

REACTIONS (39)
  - VITREOUS FLOATERS [None]
  - VISION BLURRED [None]
  - NEURALGIA [None]
  - PLEURAL EFFUSION [None]
  - JOINT DISLOCATION [None]
  - MANDIBULAR PROSTHESIS USER [None]
  - SINUSITIS [None]
  - PYREXIA [None]
  - CERVICAL SPINAL STENOSIS [None]
  - OPTIC NERVE CUPPING [None]
  - PURULENT DISCHARGE [None]
  - BONE LESION [None]
  - NAUSEA [None]
  - DYSPNOEA EXERTIONAL [None]
  - MUSCULAR WEAKNESS [None]
  - PAIN [None]
  - GASTROOESOPHAGEAL REFLUX DISEASE [None]
  - PNEUMONIA [None]
  - SPINAL OSTEOARTHRITIS [None]
  - ROTATOR CUFF SYNDROME [None]
  - OSTEONECROSIS OF JAW [None]
  - OEDEMA PERIPHERAL [None]
  - DIARRHOEA [None]
  - BONE DISORDER [None]
  - VOMITING [None]
  - DIABETES MELLITUS [None]
  - CATARACT [None]
  - VIITH NERVE PARALYSIS [None]
  - PAIN IN EXTREMITY [None]
  - MOVEMENT DISORDER [None]
  - TOOTH ABSCESS [None]
  - ARTHRITIS [None]
  - NERVE ROOT LESION [None]
  - FOOT DEFORMITY [None]
  - OSTEOARTHRITIS [None]
  - NECK PAIN [None]
  - SOFT TISSUE DISORDER [None]
  - DEVICE FAILURE [None]
  - PAIN IN JAW [None]
